FAERS Safety Report 10285942 (Version 2)
Quarter: 2014Q3

REPORT INFORMATION
  Report Type: Spontaneous
  Country: GR (occurrence: GR)
  Receive Date: 20140709
  Receipt Date: 20140722
  Transmission Date: 20150326
  Serious: Yes (Other)
  Sender: FDA-Public Use
  Company Number: PHHY2014GR082194

PATIENT
  Age: 50 Year
  Sex: Female

DRUGS (1)
  1. GILENYA [Suspect]
     Active Substance: FINGOLIMOD HYDROCHLORIDE
     Route: 048

REACTIONS (7)
  - Rash vesicular [Recovering/Resolving]
  - Vertigo [Unknown]
  - Facial paresis [Unknown]
  - Somnolence [Unknown]
  - Lymphopenia [Unknown]
  - Herpes zoster meningoencephalitis [Recovering/Resolving]
  - Head discomfort [Unknown]
